FAERS Safety Report 9779569 (Version 1)
Quarter: 2013Q4

REPORT INFORMATION
  Report Type: Spontaneous
  Country: PT (occurrence: PT)
  Receive Date: 20131223
  Receipt Date: 20131223
  Transmission Date: 20140711
  Serious: Yes (Other)
  Sender: FDA-Public Use
  Company Number: US-ASTRAZENECA-2013SE90955

PATIENT
  Age: 63 Year
  Sex: Male

DRUGS (4)
  1. ROPIVACAINE [Suspect]
     Indication: SPINAL ANAESTHESIA
     Route: 008
  2. LEVOBUPIVACAINE [Suspect]
     Indication: SPINAL ANAESTHESIA
     Route: 065
  3. MORFINE [Concomitant]
     Indication: SPINAL ANAESTHESIA
     Route: 008
  4. DE SUFENTANIL [Concomitant]
     Indication: SPINAL ANAESTHESIA

REACTIONS (2)
  - Cauda equina syndrome [Recovered/Resolved]
  - Meningitis [Recovered/Resolved]
